FAERS Safety Report 16189918 (Version 1)
Quarter: 2019Q2

REPORT INFORMATION
  Report Type: Spontaneous
  Country: US (occurrence: US)
  Receive Date: 20190412
  Receipt Date: 20190412
  Transmission Date: 20190711
  Serious: Yes (Other)
  Sender: FDA-Public Use
  Company Number: US-ALKEM LABORATORIES LIMITED-US-ALKEM-2018-03929

PATIENT
  Age: 26 Year
  Sex: Female

DRUGS (4)
  1. HALOPERIDOL. [Suspect]
     Active Substance: HALOPERIDOL
     Indication: MANIA
     Dosage: 5 MG, QID (EVERY 6 HOURS)
     Route: 048
  2. LITHIUM CARBONATE. [Suspect]
     Active Substance: LITHIUM CARBONATE
     Indication: MANIA
     Dosage: 150 MG, TID (EVERY 8 HOUR)
     Route: 048
  3. LORAZEPAM. [Suspect]
     Active Substance: LORAZEPAM
     Indication: MANIA
     Dosage: 1 MG, QID (EVERY 6 HOUR)
     Route: 048
  4. QUETIAPINE FUMARATE. [Suspect]
     Active Substance: QUETIAPINE FUMARATE
     Indication: MANIA
     Dosage: 50 MG, BID (EVERY 12 HOURS)
     Route: 048

REACTIONS (4)
  - Neuroleptic malignant syndrome [Unknown]
  - General physical health deterioration [Unknown]
  - Drug ineffective [Unknown]
  - Blood creatine phosphokinase increased [Not Recovered/Not Resolved]
